FAERS Safety Report 8530232-2 (Version None)
Quarter: 2012Q3

REPORT INFORMATION
  Report Type: 
  Country: None (occurrence: None)
  Receive Date: 20120723
  Receipt Date: 20120720
  Transmission Date: 20120928
  Serious: Yes (Hospitalization, Other)
  Sender: FDA-Public Use
  Company Number: PHHY2012DE062482

PATIENT
  Sex: Female

DRUGS (4)
  1. RAMIPRIL [Concomitant]
     Dosage: 1 DF, QD
     Route: 048
  2. BETA BLOCKING AGENTS [Concomitant]
     Dosage: 95 MG, QD
     Route: 048
  3. RASILEZ [Suspect]
     Indication: HYPERTENSION
     Dosage: 1 DF, QD
     Route: 048
  4. RAMIPRIL [Concomitant]
     Dosage: 1 DF, QD
     Route: 048

REACTIONS (14)
  - LIP SWELLING [None]
  - LYMPHADENOPATHY [None]
  - CORONARY ARTERY DISEASE [None]
  - BLOOD PRESSURE INCREASED [None]
  - TOXICITY TO VARIOUS AGENTS [None]
  - DRY MOUTH [None]
  - CONDITION AGGRAVATED [None]
  - INFLUENZA LIKE ILLNESS [None]
  - PARAESTHESIA [None]
  - COUGH [None]
  - ALOPECIA [None]
  - HEADACHE [None]
  - FLUSHING [None]
  - SWELLING FACE [None]
